FAERS Safety Report 17203525 (Version 1)
Quarter: 2019Q4

REPORT INFORMATION
  Report Type: Spontaneous
  Country: US (occurrence: US)
  Receive Date: 20191226
  Receipt Date: 20191226
  Transmission Date: 20200122
  Serious: Yes (Other)
  Sender: FDA-Public Use
  Company Number: US-CATALYST PHARMACEUTICALS, INC-2019CAT00449

PATIENT
  Age: 61 Year
  Sex: Male
  Weight: 106.58 kg

DRUGS (25)
  1. FIRDAPSE [Suspect]
     Active Substance: AMIFAMPRIDINE
     Indication: MYASTHENIC SYNDROME
     Dosage: 10 MG, 3X/DAY
     Route: 048
     Dates: start: 201908, end: 2019
  2. FIRDAPSE [Suspect]
     Active Substance: AMIFAMPRIDINE
     Dosage: 20 MG, 3X/DAY
     Route: 048
     Dates: start: 20190925
  3. PREDNISONE. [Concomitant]
     Active Substance: PREDNISONE
     Dosage: 60 MG/DAY
  4. WARFARIN [Concomitant]
     Active Substance: WARFARIN
     Dosage: UNK
     Dates: end: 2019
  5. FIRDAPSE [Suspect]
     Active Substance: AMIFAMPRIDINE
     Dosage: 15 MG, 2X/DAY
     Route: 048
     Dates: start: 2019, end: 2019
  6. PREDNISONE. [Concomitant]
     Active Substance: PREDNISONE
     Dosage: 40 MG, 1X/DAY
  7. ELIQUIS [Concomitant]
     Active Substance: APIXABAN
  8. MUCINEX [Concomitant]
     Active Substance: GUAIFENESIN
  9. FIRDAPSE [Suspect]
     Active Substance: AMIFAMPRIDINE
     Dosage: 15 MG, 1X/DAY
     Route: 048
     Dates: start: 2019, end: 2019
  10. FIRDAPSE [Suspect]
     Active Substance: AMIFAMPRIDINE
     Dosage: 10 MG, 1X/DAY
     Route: 048
     Dates: start: 2019, end: 2019
  11. FIRDAPSE [Suspect]
     Active Substance: AMIFAMPRIDINE
     Dosage: 20 MG, 1X/DAY
     Route: 048
     Dates: start: 2019, end: 2019
  12. FIRDAPSE [Suspect]
     Active Substance: AMIFAMPRIDINE
     Dosage: 20 MG, 2X/DAY
     Route: 048
     Dates: start: 2019, end: 2019
  13. PREDNISONE. [Concomitant]
     Active Substance: PREDNISONE
     Dosage: 80 MG, 1X/DAY (TAPERING)
     Dates: end: 2019
  14. FINASTERIDE. [Concomitant]
     Active Substance: FINASTERIDE
     Indication: ALOPECIA
  15. FIRDAPSE [Suspect]
     Active Substance: AMIFAMPRIDINE
     Dosage: 15 MG, 2X/DAY
     Route: 048
     Dates: start: 2019, end: 2019
  16. FIRDAPSE [Suspect]
     Active Substance: AMIFAMPRIDINE
     Dosage: 15 MG, 3X/DAY
     Route: 048
     Dates: start: 2019, end: 2019
  17. ZYRTEC [Concomitant]
     Active Substance: CETIRIZINE HYDROCHLORIDE
  18. OMEPRAZOLE. [Concomitant]
     Active Substance: OMEPRAZOLE
  19. BABY ASPIRIN [Concomitant]
     Active Substance: ASPIRIN
  20. FIRDAPSE [Suspect]
     Active Substance: AMIFAMPRIDINE
     Dosage: 15 MG, 1X/DAY
     Route: 048
     Dates: start: 2019, end: 2019
  21. PREDNISONE. [Concomitant]
     Active Substance: PREDNISONE
     Dosage: 10 MG, 1X/DAY
     Dates: start: 2019
  22. XANAX [Concomitant]
     Active Substance: ALPRAZOLAM
     Indication: INSOMNIA
  23. FIRDAPSE [Suspect]
     Active Substance: AMIFAMPRIDINE
     Dosage: 10 MG, 2X/DAY
     Route: 048
     Dates: start: 2019, end: 2019
  24. FLONASE [Concomitant]
     Active Substance: FLUTICASONE PROPIONATE
  25. VALIUM [Concomitant]
     Active Substance: DIAZEPAM
     Indication: INSOMNIA

REACTIONS (3)
  - Dyspnoea [Recovered/Resolved]
  - Therapeutic product effect incomplete [Recovered/Resolved]
  - Movement disorder [Recovered/Resolved]

NARRATIVE: CASE EVENT DATE: 2019
